FAERS Safety Report 8523596-7 (Version None)
Quarter: 2012Q3

REPORT INFORMATION
  Report Type: 
  Country: None (occurrence: None)
  Receive Date: 20120709
  Receipt Date: 20120626
  Transmission Date: 20120928
  Serious: Yes (Other)
  Sender: FDA-Public Use
  Company Number: AXC-2012-000287

PATIENT
  Age: 12 Year
  Sex: Male

DRUGS (1)
  1. DELURSAN (URSODEOXYCHOLIC ACID) TABLET, 250MG [Suspect]
     Indication: MICROLITHIASIS
     Dosage: 125 MG, BID, ORAL
     Route: 048
     Dates: start: 20120101, end: 20120610

REACTIONS (4)
  - DYSPNOEA EXERTIONAL [None]
  - ASTHMATIC CRISIS [None]
  - MALAISE [None]
  - WHEEZING [None]
